FAERS Safety Report 5236360-1 (Version None)
Quarter: 2007Q1

REPORT INFORMATION
  Report Type: 
  Country: None (occurrence: None)
  Receive Date: 20061208
  Receipt Date: 20060202
  Transmission Date: 20070707
  Serious: Yes (Other)
  Sender: FDA-Public Use
  Company Number: 2006UW01862

PATIENT
  Age: 56 Year
  Sex: Male

DRUGS (2)
  1. CRESTOR [Suspect]
     Indication: BLOOD CHOLESTEROL INCREASED
  2. ALTACE [Concomitant]

REACTIONS (5)
  - ALOPECIA [None]
  - MUSCLE ATROPHY [None]
  - MYOPATHY [None]
  - NERVOUSNESS [None]
  - PAIN IN EXTREMITY [None]
